FAERS Safety Report 9528523 (Version 1)
Quarter: 2013Q1

REPORT INFORMATION
  Report Type: Spontaneous
  Country: US (occurrence: None)
  Receive Date: 20130314
  Receipt Date: 20130314
  Transmission Date: 20140127
  Serious: No
  Sender: FDA-Public Use
  Company Number: 1301USA008631

PATIENT
  Age: 54 Year
  Sex: Male

DRUGS (3)
  1. VICTRELIS (BOCEPREVIR) CAPSULE [Suspect]
     Indication: CHRONIC HEPATITIS C
     Route: 048
     Dates: start: 20130111
  2. PEGINTRON (PEGINTERFERON ALFA-2B) POWDER FOR INJECTION [Suspect]
     Indication: CHRONIC HEPATITIS C
     Dosage: 150 MICROGRAM, PER 0.5ML
     Dates: start: 20121207
  3. RIBAPAK (RIBAVIRIN) [Suspect]
     Indication: CHRONIC HEPATITIS C
     Dosage: 600 MG IN AM AND 600 MG IN PM
     Dates: start: 20121207

REACTIONS (4)
  - Oral pustule [None]
  - Leukoplakia oral [None]
  - Glossodynia [None]
  - Glossitis [None]
